FAERS Safety Report 8426070 (Version 3)
Quarter: 2013Q1

REPORT INFORMATION
  Report Type: Spontaneous
  Country: US (occurrence: None)
  Receive Date: 20120214
  Receipt Date: 20121105
  Transmission Date: 20140127
  Serious: Yes (Hospitalization)
  Sender: FDA-Public Use
  Company Number: 129613

PATIENT
  Age: 37 Year
  Sex: Female
  Weight: 68 kg

DRUGS (1)
  1. LEUCOVORIN CALCIUM [Suspect]
     Indication: COLORECTAL CANCER METASTATIC
     Dosage: DAY 1 EVERY 14 DAYS
     Dates: start: 20110705, end: 20110810

REACTIONS (16)
  - Renal failure acute [None]
  - Vomiting [None]
  - Abdominal pain [None]
  - Gastrointestinal disorder [None]
  - Toxicity to various agents [None]
  - Rectal haemorrhage [None]
  - Pleural effusion [None]
  - Pulmonary oedema [None]
  - Lung neoplasm [None]
  - Hepatic steatosis [None]
  - Hepatomegaly [None]
  - Malignant ascites [None]
  - General physical health deterioration [None]
  - Neoplasm progression [None]
  - Colorectal cancer metastatic [None]
  - Intestinal obstruction [None]
